FAERS Safety Report 13871641 (Version 2)
Quarter: 2017Q3

REPORT INFORMATION
  Report Type: Spontaneous
  Country: AU (occurrence: AU)
  Receive Date: 20170816
  Receipt Date: 20170829
  Transmission Date: 20171127
  Serious: Yes (Hospitalization, Other)
  Sender: FDA-Public Use
  Company Number: AU-BECTON DICKINSON-2017BDN00207

PATIENT
  Sex: Female

DRUGS (2)
  1. CHLORAPREP WITH TINT [Suspect]
     Active Substance: CHLORHEXIDINE GLUCONATE\ISOPROPYL ALCOHOL
     Indication: INFECTION PROPHYLAXIS
     Dosage: UNK
     Route: 061
     Dates: start: 20170726, end: 20170726
  2. KENACORT [Suspect]
     Active Substance: TRIAMCINOLONE
     Dosage: UNK
     Dates: start: 20170726, end: 20170726

REACTIONS (1)
  - Gas gangrene [Not Recovered/Not Resolved]

NARRATIVE: CASE EVENT DATE: 20170726
